FAERS Safety Report 9517063 (Version 6)
Quarter: 2013Q4

REPORT INFORMATION
  Report Type: Spontaneous
  Country: US (occurrence: US)
  Receive Date: 20130911
  Receipt Date: 20131218
  Transmission Date: 20140711
  Serious: Yes (Other)
  Sender: FDA-Public Use
  Company Number: US-PFIZER INC-2013257374

PATIENT
  Age: 74 Year
  Sex: Male

DRUGS (10)
  1. SUTENT [Suspect]
     Indication: METASTATIC RENAL CELL CARCINOMA
     Dosage: 37.5 MG, DAILY
  2. SUTENT [Suspect]
     Dosage: 37.5 MG, CYCLIC (2ND CYCLE - 28DAYS ON AND 14 DAYS OFF)
  3. CRESTOR [Concomitant]
     Dosage: UNK
  4. AMLODIPINE [Concomitant]
     Dosage: UNK
  5. FLOMAX [Concomitant]
     Dosage: UNK
  6. METOPROLOL [Concomitant]
     Dosage: UNK
  7. LISINOPRIL [Concomitant]
     Dosage: UNK
  8. PLAVIX [Concomitant]
     Dosage: UNK
  9. ASPIRIN [Concomitant]
     Dosage: 325 MG, 1X/DAY (DAILY)
  10. PANTOPRAZOLE [Concomitant]
     Dosage: UNK

REACTIONS (23)
  - Ascites [Not Recovered/Not Resolved]
  - Renal impairment [Unknown]
  - Gastrooesophageal reflux disease [Not Recovered/Not Resolved]
  - Fatigue [Not Recovered/Not Resolved]
  - Dysgeusia [Not Recovered/Not Resolved]
  - Pain [Unknown]
  - Muscular weakness [Unknown]
  - Abdominal distension [Unknown]
  - Abdominal pain [Unknown]
  - Depression [Not Recovered/Not Resolved]
  - Diarrhoea [Unknown]
  - Decreased appetite [Not Recovered/Not Resolved]
  - Pollakiuria [Unknown]
  - Dyspnoea [Unknown]
  - Thyroid function test abnormal [Unknown]
  - General physical condition abnormal [Not Recovered/Not Resolved]
  - Dehydration [Unknown]
  - Vomiting [Unknown]
  - Dysphagia [Unknown]
  - Disease progression [Unknown]
  - Metastatic renal cell carcinoma [Unknown]
  - Alopecia [Unknown]
  - Yellow skin [Unknown]
